FAERS Safety Report 24672816 (Version 2)
Quarter: 2025Q1

REPORT INFORMATION
  Report Type: Spontaneous
  Country: US (occurrence: US)
  Receive Date: 20241128
  Receipt Date: 20250114
  Transmission Date: 20250409
  Serious: No
  Sender: MERCK
  Company Number: US-009507513-2410USA012878

PATIENT
  Sex: Female
  Weight: 93 kg

DRUGS (24)
  1. WINREVAIR [Suspect]
     Active Substance: SOTATERCEPT-CSRK
  2. WINREVAIR [Suspect]
     Active Substance: SOTATERCEPT-CSRK
  3. WINREVAIR [Suspect]
     Active Substance: SOTATERCEPT-CSRK
  4. WINREVAIR [Suspect]
     Active Substance: SOTATERCEPT-CSRK
  5. REMODULIN [Suspect]
     Active Substance: TREPROSTINIL
     Indication: Pulmonary arterial hypertension
     Route: 041
     Dates: start: 20230907
  6. TADALAFIL [Concomitant]
     Active Substance: TADALAFIL
  7. OMEPRAZOLE [Concomitant]
     Active Substance: OMEPRAZOLE
  8. MIRALAX [Concomitant]
     Active Substance: POLYETHYLENE GLYCOL 3350
  9. POTASSIUM CHLORIDE [Concomitant]
     Active Substance: POTASSIUM CHLORIDE
  10. MIRTAZAPINE [Concomitant]
     Active Substance: MIRTAZAPINE
  11. JARDIANCE [Concomitant]
     Active Substance: EMPAGLIFLOZIN
  12. MINERALS\VITAMINS [Concomitant]
     Active Substance: MINERALS\VITAMINS
  13. OPSUMIT [Concomitant]
     Active Substance: MACITENTAN
  14. BIOFREEZE [Concomitant]
     Active Substance: MENTHOL
  15. IMODIUM A-D [Concomitant]
     Active Substance: LOPERAMIDE HYDROCHLORIDE
  16. OXYGEN [Concomitant]
     Active Substance: OXYGEN
  17. BUMETANIDE [Concomitant]
     Active Substance: BUMETANIDE
  18. ACETAMINOPHEN [Concomitant]
     Active Substance: ACETAMINOPHEN
  19. GABAPENTIN [Concomitant]
     Active Substance: GABAPENTIN
  20. DIGOXIN [Concomitant]
     Active Substance: DIGOXIN
  21. ASPIRIN [Concomitant]
     Active Substance: ASPIRIN
  22. HYDROCHLOROTHIAZIDE\SPIRONOLACTONE [Concomitant]
     Active Substance: HYDROCHLOROTHIAZIDE\SPIRONOLACTONE
  23. RISPERDAL [Concomitant]
     Active Substance: RISPERIDONE
  24. UBRELVY [Concomitant]
     Active Substance: UBROGEPANT

REACTIONS (2)
  - Platelet count decreased [Unknown]
  - Gingival bleeding [Unknown]
